FAERS Safety Report 25154674 (Version 1)
Quarter: 2025Q2

REPORT INFORMATION
  Report Type: Spontaneous
  Country: US (occurrence: US)
  Receive Date: 20250403
  Receipt Date: 20250403
  Transmission Date: 20250717
  Serious: Yes (Hospitalization, Other)
  Sender: HIKMA
  Company Number: US-HIKMA PHARMACEUTICALS USA INC.-US-H14001-25-02776

PATIENT
  Age: 33 Year
  Sex: Female
  Weight: 39.1 kg

DRUGS (41)
  1. AXATILIMAB [Suspect]
     Active Substance: AXATILIMAB
     Indication: Graft versus host disease
     Route: 042
     Dates: start: 20241223, end: 20250127
  2. AXATILIMAB [Suspect]
     Active Substance: AXATILIMAB
     Route: 042
     Dates: start: 20241223, end: 20241223
  3. AXATILIMAB [Suspect]
     Active Substance: AXATILIMAB
     Route: 042
     Dates: start: 20241223, end: 20250127
  4. AXATILIMAB [Suspect]
     Active Substance: AXATILIMAB
     Route: 042
     Dates: start: 20241223, end: 20250210
  5. AXATILIMAB [Suspect]
     Active Substance: AXATILIMAB
     Route: 042
     Dates: start: 20241223, end: 20250127
  6. BLEOMYCIN [Suspect]
     Active Substance: BLEOMYCIN SULFATE
     Indication: Product used for unknown indication
     Route: 065
  7. DACARBAZINE [Suspect]
     Active Substance: DACARBAZINE
     Indication: Product used for unknown indication
     Route: 065
  8. DOXORUBICIN [Suspect]
     Active Substance: DOXORUBICIN
     Indication: Product used for unknown indication
     Route: 065
  9. JAKAFI [Suspect]
     Active Substance: RUXOLITINIB
     Indication: Product used for unknown indication
     Dosage: 10 MILLIGRAM, QD
     Route: 048
  10. JAKAFI [Suspect]
     Active Substance: RUXOLITINIB
     Dosage: 5 MILLIGRAM, BID
     Route: 048
  11. VINBLASTINE [Suspect]
     Active Substance: VINBLASTINE
     Indication: Product used for unknown indication
     Route: 065
  12. ACETAMINOPHEN [Concomitant]
     Active Substance: ACETAMINOPHEN
     Indication: Product used for unknown indication
     Route: 065
  13. ACTIGALL [Concomitant]
     Active Substance: URSODIOL
     Indication: Product used for unknown indication
     Route: 065
  14. ATIVAN [Concomitant]
     Active Substance: LORAZEPAM
     Indication: Product used for unknown indication
     Route: 065
  15. BACTRIM DS [Concomitant]
     Active Substance: SULFAMETHOXAZOLE\TRIMETHOPRIM
     Indication: Product used for unknown indication
     Route: 065
  16. BECLOMETHASONE DIPROPIONATE [Concomitant]
     Active Substance: BECLOMETHASONE DIPROPIONATE
     Indication: Product used for unknown indication
     Route: 065
  17. BENZONATATE [Concomitant]
     Active Substance: BENZONATATE
     Indication: Product used for unknown indication
     Route: 065
  18. CETYLPYRIDINIUM CHLORIDE [Concomitant]
     Active Substance: CETYLPYRIDINIUM CHLORIDE
     Indication: Product used for unknown indication
     Route: 065
  19. BUDESONIDE [Concomitant]
     Active Substance: BUDESONIDE
     Indication: Product used for unknown indication
     Route: 065
  20. CRESEMBA [Concomitant]
     Active Substance: ISAVUCONAZONIUM SULFATE
     Indication: Product used for unknown indication
     Route: 065
  21. DELTASONE [Concomitant]
     Active Substance: PREDNISONE
     Indication: Product used for unknown indication
     Route: 065
  22. DEXTROMETHORPHAN HYDROBROMIDE AND GUAIFENESIN [Concomitant]
     Active Substance: DEXTROMETHORPHAN HYDROBROMIDE\GUAIFENESIN
     Indication: Product used for unknown indication
     Route: 065
  23. DRISDOL [Concomitant]
     Active Substance: ERGOCALCIFEROL
     Indication: Product used for unknown indication
     Route: 065
  24. IMODIUM [Concomitant]
     Active Substance: LOPERAMIDE HYDROCHLORIDE
     Indication: Product used for unknown indication
     Route: 065
  25. ISAVUCONAZONIUM SULFATE [Concomitant]
     Active Substance: ISAVUCONAZONIUM SULFATE
     Indication: Product used for unknown indication
     Route: 065
  26. KLOR-CON M10 [Concomitant]
     Active Substance: POTASSIUM CHLORIDE
     Indication: Product used for unknown indication
     Route: 065
  27. LOMOTIL [Concomitant]
     Active Substance: ATROPINE SULFATE\DIPHENOXYLATE HYDROCHLORIDE
     Indication: Product used for unknown indication
     Route: 065
  28. MARINOL [Concomitant]
     Active Substance: DRONABINOL
     Indication: Product used for unknown indication
     Route: 065
  29. MG PLUS PROTEIN [Concomitant]
     Indication: Product used for unknown indication
     Route: 065
  30. MINERAL OIL LIGHT;PARAFFIN;PETROLATUM;WOOL ALCOHOLS [Concomitant]
     Indication: Product used for unknown indication
     Route: 065
  31. NARCAN [Concomitant]
     Active Substance: NALOXONE HYDROCHLORIDE
     Indication: Product used for unknown indication
     Route: 065
  32. OPIUM TINCTURE [Concomitant]
     Active Substance: MORPHINE
     Indication: Product used for unknown indication
     Route: 065
  33. PANTOPRAZOLE SODIUM [Concomitant]
     Active Substance: PANTOPRAZOLE SODIUM
     Indication: Product used for unknown indication
     Route: 065
  34. PREVYMIS [Concomitant]
     Active Substance: LETERMOVIR
     Indication: Product used for unknown indication
     Route: 065
  35. PROGRAF [Concomitant]
     Active Substance: TACROLIMUS
     Indication: Product used for unknown indication
     Route: 065
  36. PROMACTA [Concomitant]
     Active Substance: ELTROMBOPAG OLAMINE
     Indication: Product used for unknown indication
     Route: 065
  37. REFRESH TEARS [Concomitant]
     Active Substance: CARBOXYMETHYLCELLULOSE SODIUM
     Indication: Product used for unknown indication
     Route: 065
  38. REMERON [Concomitant]
     Active Substance: MIRTAZAPINE
     Indication: Product used for unknown indication
     Route: 065
  39. VALCYTE [Concomitant]
     Active Substance: VALGANCICLOVIR HYDROCHLORIDE
     Indication: Product used for unknown indication
     Route: 065
  40. ZOVIRAX [Concomitant]
     Active Substance: ACYCLOVIR
     Indication: Product used for unknown indication
     Route: 065
  41. ZYPREXA [Concomitant]
     Active Substance: OLANZAPINE
     Indication: Product used for unknown indication
     Route: 065

REACTIONS (27)
  - Abdominal pain [Recovered/Resolved]
  - Palpitations [Not Recovered/Not Resolved]
  - Hodgkin^s disease refractory [Recovering/Resolving]
  - Hodgkin^s disease [Recovering/Resolving]
  - Chronic graft versus host disease in intestine [Unknown]
  - Graft versus host disease in liver [Recovered/Resolved]
  - Immunodeficiency [Unknown]
  - Renal atrophy [Unknown]
  - Pneumonitis [Recovered/Resolved]
  - Major depression [Unknown]
  - Immunosuppression [Unknown]
  - Herpes simplex viraemia [Unknown]
  - Pneumonia [Unknown]
  - Enterobacter bacteraemia [Recovered/Resolved]
  - Sepsis [Recovered/Resolved]
  - Influenza [Not Recovered/Not Resolved]
  - Thrombocytopenia [Unknown]
  - Tachycardia [Recovered/Resolved]
  - Muscle disorder [Unknown]
  - Generalised anxiety disorder [Unknown]
  - Malnutrition [Unknown]
  - Pyrexia [Unknown]
  - Rash [Unknown]
  - Cough [Recovering/Resolving]
  - Metapneumovirus infection [Unknown]
  - Rhinovirus infection [Unknown]
  - Anaemia [Unknown]

NARRATIVE: CASE EVENT DATE: 20140101
